FAERS Safety Report 8570110-6 (Version None)
Quarter: 2012Q3

REPORT INFORMATION
  Report Type: 
  Country: None (occurrence: None)
  Receive Date: 20120803
  Receipt Date: 20120310
  Transmission Date: 20120928
  Serious: No
  Sender: FDA-Public Use
  Company Number: US-ABBOTT-12P-163-0913707-00

PATIENT
  Sex: Female

DRUGS (2)
  1. NIASPAN [Suspect]
     Indication: PRODUCT USED FOR UNKNOWN INDICATION
     Dosage: 1000 MG DAILY
     Dates: start: 20111201
  2. BENADRYL [Concomitant]
     Indication: PRODUCT USED FOR UNKNOWN INDICATION
     Dosage: 30 MIN. PRIOR TO NIASPAN DOSE

REACTIONS (5)
  - ERYTHEMA [None]
  - FATIGUE [None]
  - SKIN BURNING SENSATION [None]
  - FLUSHING [None]
  - FEELING HOT [None]
